FAERS Safety Report 18685067 (Version 1)
Quarter: 2020Q4

REPORT INFORMATION
  Report Type: Spontaneous
  Country: US (occurrence: US)
  Receive Date: 20201230
  Receipt Date: 20201230
  Transmission Date: 20210114
  Serious: Yes (Other)
  Sender: FDA-Public Use
  Company Number: US-TOLMAR, INC.-20US024611

PATIENT
  Age: 74 Year
  Sex: Female
  Weight: 63.6 kg

DRUGS (23)
  1. LABETALOL [Concomitant]
     Active Substance: LABETALOL\LABETALOL HYDROCHLORIDE
     Dosage: 300 MG, BID DAY 11-DAY 19
     Route: 048
  2. TIZANIDINE. [Suspect]
     Active Substance: TIZANIDINE
     Indication: MUSCLE SPASMS
  3. BACLOFEN. [Concomitant]
     Active Substance: BACLOFEN
     Indication: MUSCULOSKELETAL PAIN
     Dosage: 10 MG, TID HOSPITALIZATION DAY 14-DAY 21
     Route: 048
  4. BACLOFEN. [Concomitant]
     Active Substance: BACLOFEN
     Indication: MUSCLE SPASMS
  5. OXYCODONE [OXYCODONE HYDROCHLORIDE] [Concomitant]
     Active Substance: OXYCODONE HYDROCHLORIDE
     Indication: MUSCULOSKELETAL PAIN
     Dosage: 10 MG, TID SR HOSPITALIZATION DAY 19-DAY 29
     Route: 048
  6. AMLODIPINE [Concomitant]
     Active Substance: AMLODIPINE BESYLATE
     Indication: HYPERTENSION
     Dosage: 5 MG, QD DAY 12-DAY 29
     Route: 048
  7. OXYCODONE [OXYCODONE HYDROCHLORIDE] [Concomitant]
     Active Substance: OXYCODONE HYDROCHLORIDE
     Dosage: 10 MG, PRN Q 4 HOURS HOSPITALIZATION DAY 22-DAY 29
     Route: 048
  8. DEXAMETHASONE. [Concomitant]
     Active Substance: DEXAMETHASONE
     Indication: MUSCLE SPASMS
     Dosage: 4 MG, QD HOSPITALIZATION DAY 16-DAY 20
     Route: 040
  9. PANTOPRAZOLE [Concomitant]
     Active Substance: PANTOPRAZOLE
     Indication: PROPHYLAXIS
     Dosage: 40 MG, QD HOSPITALIZATION DAY 3-DAY 29
     Route: 048
  10. ACYCLOVIR. [Suspect]
     Active Substance: ACYCLOVIR
     Indication: PROPHYLAXIS
     Dosage: 400 MG, BID DAY 16-DAY 29
     Route: 048
  11. HYDRALAZINE [Suspect]
     Active Substance: HYDRALAZINE HYDROCHLORIDE
     Indication: HYPERTENSION
     Dosage: 25 MG, BID DAY 11-DAY 29
     Route: 048
  12. ACETAMINOPHEN;HYDROCODONE [Concomitant]
     Active Substance: ACETAMINOPHEN\HYDROCODONE
     Indication: MUSCULOSKELETAL PAIN
     Dosage: 325 MG, PRN Q 4 HOURS HOSPITALIZATION DAY 0-DAY 13, DAY 2-DAY 14
     Route: 048
  13. LIDOCAINE. [Concomitant]
     Active Substance: LIDOCAINE
     Indication: MUSCLE SPASMS
  14. LIDOCAINE. [Concomitant]
     Active Substance: LIDOCAINE
     Indication: MUSCULOSKELETAL PAIN
     Dosage: UNK, QD HOSPITALIZATION DAY 14- DAY 19
     Route: 062
  15. DEXAMETHASONE. [Concomitant]
     Active Substance: DEXAMETHASONE
     Dosage: 4 MG, Q 8 HR HOSPITALIZATION DAY 21-DAY 28
     Route: 048
  16. BORTEZOMIB. [Suspect]
     Active Substance: BORTEZOMIB
     Indication: PLASMA CELL MYELOMA
     Dosage: 2.3 MG HOSPITALIZATION; ONE TIME ON DAY 16
     Route: 058
  17. LABETALOL [Concomitant]
     Active Substance: LABETALOL\LABETALOL HYDROCHLORIDE
     Indication: HYPERTENSION
     Dosage: 200 MG, BID HOSPITALIZATION DAY 0-DAY 11, DAY 19-DAY 29
     Route: 048
  18. METHADONE [Concomitant]
     Active Substance: METHADONE HYDROCHLORIDE
     Indication: MUSCULOSKELETAL PAIN
     Dosage: 5 MG, Q 6 HR HOSPITALIZATION DAY 10-DAY 29
     Route: 048
  19. METHADONE [Concomitant]
     Active Substance: METHADONE HYDROCHLORIDE
     Indication: MUSCLE SPASMS
     Dosage: 5 MG, Q 8 HR HOSPITALIZATION DAY 10-DAY 29
     Route: 048
  20. DEXAMETHASONE. [Concomitant]
     Active Substance: DEXAMETHASONE
     Indication: PLASMA CELL MYELOMA
     Dosage: 4 MG, Q 6 HR HOSPITALIZATION DAY 21-DAY 28
     Route: 048
  21. TIZANIDINE. [Suspect]
     Active Substance: TIZANIDINE
     Indication: PAIN
     Dosage: 2 MG, TID HOSPITALIZATION DAY 14 TO DAY 19
     Route: 048
  22. DABIGATRAN [Concomitant]
     Active Substance: DABIGATRAN
     Indication: ATRIAL FIBRILLATION
     Dosage: 150 (UNITS NOT REPORTED) BID HOSPITALIZATION DAY 12 TO DAY 29
     Route: 048
  23. DEXAMETHASONE. [Concomitant]
     Active Substance: DEXAMETHASONE
     Indication: MUSCULOSKELETAL PAIN
     Dosage: 20 MG, QD
     Route: 040

REACTIONS (6)
  - Hepatitis acute [Recovering/Resolving]
  - Hepatic enzyme increased [Recovering/Resolving]
  - Blood albumin decreased [Unknown]
  - Fatigue [Unknown]
  - Drug level increased [Unknown]
  - Drug interaction [Unknown]
